FAERS Safety Report 4326648-0 (Version None)
Quarter: 2004Q1

REPORT INFORMATION
  Report Type: 
  Country: None (occurrence: None)
  Receive Date: 20040329
  Receipt Date: 20040329
  Transmission Date: 20041129
  Serious: Yes (Hospitalization)
  Sender: FDA-Public Use
  Company Number: None

PATIENT
  Age: 53 Year
  Sex: Female
  Weight: 176.9028 kg

DRUGS (1)
  1. ETANERCEPT 25 MCG AMGEN/WYETH [Suspect]
     Indication: RHEUMATOID ARTHRITIS
     Dosage: 25 MCG 2X/WEEK SUBCUTANEOUS
     Route: 058
     Dates: start: 20031101, end: 20040115

REACTIONS (12)
  - ASTERIXIS [None]
  - ASTHENIA [None]
  - DRUG SCREEN POSITIVE [None]
  - DYSKINESIA [None]
  - DYSPNOEA [None]
  - FATIGUE [None]
  - HYPOTONIA [None]
  - MEMORY IMPAIRMENT [None]
  - MENTAL IMPAIRMENT [None]
  - METABOLIC ENCEPHALOPATHY [None]
  - MUSCLE TWITCHING [None]
  - TREMOR [None]
